FAERS Safety Report 7082552-9 (Version None)
Quarter: 2010Q3

REPORT INFORMATION
  Report Type: 
  Country: None (occurrence: None)
  Receive Date: 20100929
  Receipt Date: 20100628
  Transmission Date: 20110219
  Serious: No
  Sender: FDA-Public Use
  Company Number: US-WYE-H16181210

PATIENT
  Sex: Male

DRUGS (1)
  1. PRISTIQ [Suspect]

REACTIONS (3)
  - ANXIETY [None]
  - CRYING [None]
  - DEPRESSED MOOD [None]
